FAERS Safety Report 8393892-5 (Version None)
Quarter: 2012Q2

REPORT INFORMATION
  Report Type: 
  Country: None (occurrence: None)
  Receive Date: 20120530
  Receipt Date: 20120518
  Transmission Date: 20120825
  Serious: Yes (Hospitalization, Other)
  Sender: FDA-Public Use
  Company Number: DE-VERTEX PHARMACEUTICALS INC.-000000000000000743

PATIENT
  Age: 60 Year
  Sex: Female

DRUGS (4)
  1. PEGASYS [Concomitant]
     Indication: HEPATITIS C
     Dosage: DOSAGE FORM: INJECTION
     Route: 058
     Dates: start: 20120210, end: 20120413
  2. FORMOTEROL FUMARATE [Concomitant]
     Dosage: DOSAGE FORM: INHALATION
     Route: 048
     Dates: start: 20120328
  3. COPEGUS [Concomitant]
     Indication: HEPATITIS C
     Dosage: DOSAGE FORM: TABLET
     Route: 048
     Dates: start: 20120210, end: 20120417
  4. TELAPREVIR [Suspect]
     Indication: HEPATITIS C
     Dosage: DOSAGE FORM: TABLET
     Route: 048
     Dates: start: 20120210, end: 20120417

REACTIONS (7)
  - ASCITES [None]
  - URINARY TRACT INFECTION [None]
  - RHABDOMYOLYSIS [None]
  - URINARY TRACT INFECTION ENTEROCOCCAL [None]
  - COUGH [None]
  - ESCHERICHIA URINARY TRACT INFECTION [None]
  - ESCHERICHIA SEPSIS [None]
